FAERS Safety Report 24196774 (Version 1)
Quarter: 2024Q3

REPORT INFORMATION
  Report Type: Spontaneous
  Country: US (occurrence: US)
  Receive Date: 20240810
  Receipt Date: 20240810
  Transmission Date: 20241017
  Serious: Yes (Other)
  Sender: ABBVIE
  Company Number: US-ABBVIE-5871590

PATIENT
  Weight: 83 kg

DRUGS (1)
  1. UBRELVY [Suspect]
     Active Substance: UBROGEPANT
     Indication: Migraine
     Dosage: FORM STRENGTH: 100 MILLIGRAM?FREQUENCY TEXT: TOOK ONLY 2 DOSES
     Route: 048
     Dates: start: 2023

REACTIONS (1)
  - Suicidal ideation [Recovered/Resolved]
